FAERS Safety Report 26213774 (Version 1)
Quarter: 2025Q4

REPORT INFORMATION
  Report Type: Spontaneous
  Country: JP (occurrence: JP)
  Receive Date: 20251230
  Receipt Date: 20251230
  Transmission Date: 20260118
  Serious: Yes (Hospitalization, Other)
  Sender: MYLAN
  Company Number: JP-MYLANLABS-2025M1110896

PATIENT
  Age: 4 Decade
  Sex: Male

DRUGS (6)
  1. EPIPEN [Suspect]
     Active Substance: EPINEPHRINE
     Indication: Anaphylactic shock
     Dosage: 0.5 MILLIGRAM
  2. EPIPEN [Suspect]
     Active Substance: EPINEPHRINE
     Dosage: 0.5 MILLIGRAM
  3. EPIPEN [Suspect]
     Active Substance: EPINEPHRINE
     Dosage: 0.5 MILLIGRAM
  4. EPIPEN [Suspect]
     Active Substance: EPINEPHRINE
     Dosage: UNK
  5. AROTINOLOL [Suspect]
     Active Substance: AROTINOLOL
     Indication: Product used for unknown indication
     Dosage: 20 MILLIGRAM, QD
  6. GLUCAGON [Concomitant]
     Active Substance: GLUCAGON
     Indication: Anaphylactic shock
     Dosage: 1 MILLIGRAM

REACTIONS (2)
  - Kounis syndrome [Recovering/Resolving]
  - Therapeutic response decreased [Unknown]
